FAERS Safety Report 13863934 (Version 4)
Quarter: 2017Q4

REPORT INFORMATION
  Report Type: Report from Study
  Country: DE (occurrence: DE)
  Receive Date: 20170814
  Receipt Date: 20171115
  Transmission Date: 20180320
  Serious: Yes (Hospitalization)
  Sender: FDA-Public Use
  Company Number: DE-ROCHE-1974075

PATIENT
  Age: 66 Year
  Sex: Female

DRUGS (5)
  1. BLINDED OLAPARIB [Suspect]
     Active Substance: OLAPARIB
     Indication: OVARIAN CANCER
     Dosage: MOST RECENT DOSE PRIOR TO THE SAE: 01/AUG/2017?TEMPORARILY INTERUPTED ON 02/AUG/2017
     Route: 065
     Dates: start: 20161221
  2. RAMIPRIL. [Concomitant]
     Active Substance: RAMIPRIL
     Route: 048
  3. BEVACIZUMAB. [Suspect]
     Active Substance: BEVACIZUMAB
     Indication: OVARIAN CANCER
     Dosage: MOST RECENT DOSE PRIOR TO SAE : 25/JUL/2017
     Route: 065
     Dates: start: 20161221, end: 20170802
  4. TRAMADOL. [Concomitant]
     Active Substance: TRAMADOL
     Route: 048
  5. ESOMEP [Concomitant]
     Active Substance: ESOMEPRAZOLE
     Route: 048

REACTIONS (2)
  - Paraneoplastic dermatomyositis [Recovered/Resolved with Sequelae]
  - Myopathy toxic [Not Recovered/Not Resolved]

NARRATIVE: CASE EVENT DATE: 20170801
